FAERS Safety Report 22255007 (Version 2)
Quarter: 2023Q2

REPORT INFORMATION
  Report Type: Other
  Country: IT (occurrence: None)
  Receive Date: 20230426
  Receipt Date: 20230509
  Transmission Date: 20230721
  Serious: Yes (Death, Hospitalization, Other)
  Sender: FDA-Public Use
  Company Number: IT-ROCHE-3096526

PATIENT
  Sex: Male
  Weight: 79 kg

DRUGS (4)
  1. PRALSETINIB [Suspect]
     Active Substance: PRALSETINIB
     Indication: Thyroid cancer
     Route: 048
     Dates: start: 20211028
  2. PRALSETINIB [Suspect]
     Active Substance: PRALSETINIB
     Dosage: 100 MG
     Route: 002
     Dates: start: 20220309
  3. PRALSETINIB [Suspect]
     Active Substance: PRALSETINIB
     Dosage: 200 MG
     Route: 002
     Dates: start: 20220407
  4. PRALSETINIB [Suspect]
     Active Substance: PRALSETINIB
     Route: 002
     Dates: start: 20221201

REACTIONS (9)
  - Thrombocytopenia [Unknown]
  - Off label use [Unknown]
  - Myelosuppression [Unknown]
  - Pneumonia [Fatal]
  - General physical health deterioration [Fatal]
  - Asthenia [Fatal]
  - Asthenia [Fatal]
  - Cognitive disorder [Fatal]
  - Sepsis [Fatal]
